FAERS Safety Report 9608380 (Version 17)
Quarter: 2016Q2

REPORT INFORMATION
  Report Type: Report from Study
  Country: CA (occurrence: CA)
  Receive Date: 20131009
  Receipt Date: 20160629
  Transmission Date: 20160815
  Serious: Yes (Other)
  Sender: FDA-Public Use
  Company Number: PHHY2013CA026241

PATIENT
  Age: 47 Year
  Sex: Female

DRUGS (3)
  1. OCTREOTIDE. [Suspect]
     Active Substance: OCTREOTIDE
     Indication: PANCREATIC NEUROENDOCRINE TUMOUR
     Dosage: ONCE/SINGLE
     Route: 058
     Dates: start: 20110615, end: 20110615
  2. AFINITOR [Suspect]
     Active Substance: EVEROLIMUS
     Indication: PANCREATIC NEUROENDOCRINE TUMOUR
     Dosage: 10 MG, QD
     Route: 048
     Dates: start: 20121010, end: 20160111
  3. SANDOSTATIN LAR DEPOT [Suspect]
     Active Substance: OCTREOTIDE ACETATE
     Indication: PANCREATIC NEUROENDOCRINE TUMOUR
     Dosage: 30 MG, QMO (EVERY 4 WEEKS)
     Route: 030
     Dates: start: 20110627

REACTIONS (22)
  - Rhinorrhoea [Recovered/Resolved]
  - Dry skin [Unknown]
  - Fatigue [Unknown]
  - Injection site induration [Unknown]
  - Hypoxia [Unknown]
  - Needle issue [Unknown]
  - Skin discolouration [Unknown]
  - Blood pressure systolic increased [Unknown]
  - Nasopharyngitis [Recovering/Resolving]
  - Ovarian cyst [Unknown]
  - Injection site hypersensitivity [Unknown]
  - Pneumonia [Unknown]
  - Tenderness [Recovering/Resolving]
  - Nasopharyngitis [Recovered/Resolved]
  - Diabetes mellitus [Unknown]
  - Anxiety [Unknown]
  - Erythema [Unknown]
  - Dysphonia [Recovered/Resolved]
  - Injection site mass [Unknown]
  - Skin plaque [Unknown]
  - Cough [Recovered/Resolved]
  - Dyspnoea [Unknown]

NARRATIVE: CASE EVENT DATE: 20131107
